FAERS Safety Report 6419217-X (Version None)
Quarter: 2009Q4

REPORT INFORMATION
  Report Type: 
  Country: None (occurrence: None)
  Receive Date: 20091029
  Receipt Date: 20091022
  Transmission Date: 20100525
  Serious: Yes (Hospitalization)
  Sender: FDA-Public Use
  Company Number: US-NOVOPROD-293198

PATIENT
  Sex: Female

DRUGS (15)
  1. NOVOLIN R [Suspect]
     Indication: INSULIN-REQUIRING TYPE 2 DIABETES MELLITUS
     Dosage: SLIDING SCALE
     Route: 058
     Dates: start: 20070101
  2. PRILOSEC [Concomitant]
     Indication: DRUG USE FOR UNKNOWN INDICATION
     Route: 048
  3. CARVEDILOL [Concomitant]
     Indication: CARDIOMEGALY
     Route: 048
  4. LISINOPRIL [Concomitant]
     Indication: CARDIOMEGALY
     Route: 048
  5. DIXEN [Concomitant]
     Indication: DRUG USE FOR UNKNOWN INDICATION
     Dosage: 1 TAB EVERY OTHER DAY
     Route: 048
  6. LASIX [Concomitant]
     Indication: CARDIAC FAILURE CONGESTIVE
     Route: 048
  7. VISION PLUS [Concomitant]
     Indication: CATARACT
     Route: 031
  8. TRAVATAN [Concomitant]
     Indication: CATARACT
     Route: 031
  9. AZOPT [Concomitant]
     Indication: CATARACT
     Route: 031
  10. AZOPT [Concomitant]
  11. REMERON [Concomitant]
     Indication: DEPRESSION
  12. OXYGEN [Concomitant]
     Indication: CARDIAC FAILURE CONGESTIVE
     Dosage: UNK, UNK
     Route: 055
  13. NAMENDA [Concomitant]
     Route: 048
  14. ARICEPT                            /01318901/ [Concomitant]
     Route: 048
  15. CALCIUM [Concomitant]
     Indication: VITAMIN SUPPLEMENTATION
     Dosage: 600 MG, QD
     Route: 048

REACTIONS (1)
  - URINARY TRACT INFECTION [None]
